FAERS Safety Report 8305918-5 (Version None)
Quarter: 2012Q2

REPORT INFORMATION
  Report Type: 
  Country: None (occurrence: None)
  Receive Date: 20120423
  Receipt Date: 20120413
  Transmission Date: 20120825
  Serious: Yes (Other)
  Sender: FDA-Public Use
  Company Number: US-ABBOTT-12P-163-0926267-00

PATIENT
  Sex: Female

DRUGS (5)
  1. PREDNISONE TAB [Concomitant]
     Indication: RHEUMATOID ARTHRITIS
  2. HUMIRA [Suspect]
     Indication: RHEUMATOID ARTHRITIS
     Route: 058
     Dates: start: 20110101, end: 20110901
  3. PLAQUENIL [Concomitant]
     Indication: RHEUMATOID ARTHRITIS
  4. HUMIRA [Suspect]
     Route: 058
     Dates: start: 20120301
  5. MULTI-VITAMINS [Concomitant]
     Indication: VITAMIN SUPPLEMENTATION

REACTIONS (1)
  - PLACENTAL DISORDER [None]
